FAERS Safety Report 5360447-6 (Version None)
Quarter: 2007Q2

REPORT INFORMATION
  Report Type: 
  Country: None (occurrence: None)
  Receive Date: 20070618
  Receipt Date: 20070605
  Transmission Date: 20071010
  Serious: Yes (Hospitalization)
  Sender: FDA-Public Use
  Company Number: IE-ASTRAZENECA-2007GB01022

PATIENT
  Age: 5827 Day
  Sex: Female

DRUGS (1)
  1. QUETIAPINE [Suspect]
     Indication: PSYCHOTIC DISORDER
     Route: 048
     Dates: start: 20070501

REACTIONS (2)
  - DIZZINESS [None]
  - ELECTROCARDIOGRAM AMBULATORY ABNORMAL [None]
